FAERS Safety Report 11681268 (Version 2)
Quarter: 2015Q4

REPORT INFORMATION
  Report Type: Spontaneous
  Country: US (occurrence: US)
  Receive Date: 20151027
  Receipt Date: 20151104
  Transmission Date: 20160304
  Serious: No
  Sender: FDA-Public Use
  Company Number: US-ELI_LILLY_AND_COMPANY-US201006001625

PATIENT
  Age: 42 Year
  Sex: Female

DRUGS (5)
  1. FORTEO [Suspect]
     Active Substance: TERIPARATIDE
     Dosage: 20 UG, QD
     Route: 065
  2. FORTEO [Suspect]
     Active Substance: TERIPARATIDE
     Indication: OSTEOPOROSIS
     Dosage: 20 UG, DAILY (1/D)
     Route: 065
     Dates: start: 20100508
  3. FORTEO [Suspect]
     Active Substance: TERIPARATIDE
     Dosage: 20 UG, QD
     Route: 065
  4. FORTEO [Suspect]
     Active Substance: TERIPARATIDE
     Dosage: 20 UG, QD
     Route: 065
  5. FORTEO [Suspect]
     Active Substance: TERIPARATIDE
     Dosage: 20 UG, QD

REACTIONS (18)
  - Pain in extremity [Unknown]
  - Bone marrow oedema [Not Recovered/Not Resolved]
  - Lacrimation increased [Not Recovered/Not Resolved]
  - Memory impairment [Unknown]
  - Anaemia macrocytic [Unknown]
  - Oedema [Recovered/Resolved]
  - Bone pain [Unknown]
  - Psychomotor skills impaired [Unknown]
  - Back pain [Unknown]
  - Eye disorder [Unknown]
  - Mood altered [Unknown]
  - Arthralgia [Unknown]
  - Rhinorrhoea [Not Recovered/Not Resolved]
  - Muscle spasms [Unknown]
  - Oedema peripheral [Unknown]
  - Nasal discomfort [Not Recovered/Not Resolved]
  - Dementia Alzheimer^s type [Unknown]
  - Ocular hyperaemia [Not Recovered/Not Resolved]

NARRATIVE: CASE EVENT DATE: 201101
